FAERS Safety Report 4759851-6 (Version None)
Quarter: 2005Q3

REPORT INFORMATION
  Report Type: 
  Country: None (occurrence: None)
  Receive Date: 20050831
  Receipt Date: 20050816
  Transmission Date: 20060218
  Serious: Yes (Other)
  Sender: FDA-Public Use
  Company Number: USA0508105682

PATIENT
  Age: 53 Year
  Sex: Female

DRUGS (4)
  1. HUMULIN N [Suspect]
     Indication: DIABETES MELLITUS
     Dates: start: 19870101
  2. HUMULIN R [Suspect]
     Indication: DIABETES MELLITUS
     Dates: start: 19870101
  3. HUMALOG [Suspect]
     Indication: DIABETES MELLITUS
     Dates: start: 19950101
  4. LANTUS [Concomitant]

REACTIONS (6)
  - BREAST CANCER FEMALE [None]
  - CULTURE THROAT POSITIVE [None]
  - ESCHERICHIA INFECTION [None]
  - PHARMACEUTICAL PRODUCT COMPLAINT [None]
  - PNEUMONIA [None]
  - UNEVALUABLE EVENT [None]
